FAERS Safety Report 23196920 (Version 1)
Quarter: 2023Q4

REPORT INFORMATION
  Report Type: Spontaneous
  Country: US (occurrence: None)
  Receive Date: 20231117
  Receipt Date: 20231117
  Transmission Date: 20240109
  Serious: No
  Sender: FDA-Public Use
  Company Number: 2023A245126

PATIENT
  Sex: Male

DRUGS (1)
  1. BRILINTA [Suspect]
     Active Substance: TICAGRELOR
     Dosage: UNKNOWN
     Route: 048

REACTIONS (12)
  - Skin wrinkling [Unknown]
  - Solar lentigo [Unknown]
  - Rhinalgia [Unknown]
  - Erythema [Unknown]
  - Discomfort [Unknown]
  - Perioral dermatitis [Unknown]
  - Nasal septum deviation [Unknown]
  - Contusion [Unknown]
  - Rash [Unknown]
  - Blood urine present [Unknown]
  - Haemorrhage [Unknown]
  - Dyspnoea [Unknown]
